FAERS Safety Report 10177707 (Version 1)
Quarter: 2014Q2

REPORT INFORMATION
  Report Type: Spontaneous
  Country: US (occurrence: US)
  Receive Date: 20140516
  Receipt Date: 20140516
  Transmission Date: 20141212
  Serious: No
  Sender: FDA-Public Use
  Company Number: US-SA-2014SA029821

PATIENT
  Age: 54 Year
  Sex: Female

DRUGS (4)
  1. APIDRA [Suspect]
     Indication: DIABETES MELLITUS
     Dosage: FREQUENCY - VIA PUMP
     Route: 058
  2. PLAVIX [Suspect]
     Route: 065
  3. REGLAN [Suspect]
     Route: 065
  4. PROTONIX [Suspect]
     Route: 065

REACTIONS (4)
  - Infection [Not Recovered/Not Resolved]
  - Rash pruritic [Not Recovered/Not Resolved]
  - Scratch [Not Recovered/Not Resolved]
  - Blood glucose increased [Not Recovered/Not Resolved]
